FAERS Safety Report 21326259 (Version 2)
Quarter: 2022Q4

REPORT INFORMATION
  Report Type: Spontaneous
  Country: CA (occurrence: CA)
  Receive Date: 20220913
  Receipt Date: 20221209
  Transmission Date: 20230113
  Serious: Yes (Hospitalization, Other)
  Sender: FDA-Public Use
  Company Number: CA-BRISTOL-MYERS SQUIBB COMPANY-2022-103382

PATIENT
  Age: 78 Year
  Sex: Female
  Weight: 71 kg

DRUGS (1)
  1. OPDIVO [Suspect]
     Active Substance: NIVOLUMAB
     Indication: Malignant melanoma
     Dosage: DOSE : UNKNOWN TO PATIENT;     FREQ : UNAV
     Route: 065
     Dates: start: 2021

REACTIONS (1)
  - Pulmonary fibrosis [Unknown]
